FAERS Safety Report 17208724 (Version 4)
Quarter: 2022Q2

REPORT INFORMATION
  Report Type: Spontaneous
  Country: US (occurrence: US)
  Receive Date: 20191227
  Receipt Date: 20220511
  Transmission Date: 20220721
  Serious: No
  Sender: FDA-Public Use
  Company Number: US-PFIZER INC-2019551144

PATIENT
  Age: 59 Year
  Sex: Female

DRUGS (14)
  1. XELJANZ XR [Suspect]
     Active Substance: TOFACITINIB CITRATE
     Indication: Psoriatic arthropathy
     Dosage: 11 MG, DAILY
     Route: 048
     Dates: start: 20191215
  2. XELJANZ XR [Suspect]
     Active Substance: TOFACITINIB CITRATE
     Dosage: 11 MG, DAILY
     Route: 048
     Dates: start: 20191215
  3. FISH OIL [Concomitant]
     Active Substance: FISH OIL
     Dosage: UNK (100-150 MG CAPSULE)
  4. HYDROCHLOROTHIAZIDE [Concomitant]
     Active Substance: HYDROCHLOROTHIAZIDE
     Dosage: UNK (12.5MG)
  5. NORVASC [Concomitant]
     Active Substance: AMLODIPINE BESYLATE
     Dosage: UNK (10MG)
  6. LOSARTAN POTASSIUM [Concomitant]
     Active Substance: LOSARTAN POTASSIUM
     Dosage: UNK (100MG)
  7. PROZAC [Concomitant]
     Active Substance: FLUOXETINE HYDROCHLORIDE
     Dosage: UNK (10MG)
  8. VIMOVO [Concomitant]
     Active Substance: ESOMEPRAZOLE MAGNESIUM\NAPROXEN
     Dosage: UNK
  9. LEVOTHYROXINE SODIUM [Concomitant]
     Active Substance: LEVOTHYROXINE SODIUM
     Dosage: UNK (100 MCG)
  10. XELJANZ [Concomitant]
     Active Substance: TOFACITINIB CITRATE
     Dosage: UNK
  11. CLOBETASOL [Concomitant]
     Active Substance: CLOBETASOL
     Dosage: UNK
  12. NEXIUM I.V. [Concomitant]
     Active Substance: ESOMEPRAZOLE SODIUM
     Dosage: UNK (20MG)
  13. CELEBREX [Concomitant]
     Active Substance: CELECOXIB
     Dosage: UNK (200MG)
  14. IBUPROFEN SODIUM [Concomitant]
     Active Substance: IBUPROFEN SODIUM
     Dosage: UNK (200MG)

REACTIONS (7)
  - Pain [Unknown]
  - Mobility decreased [Unknown]
  - Diarrhoea [Unknown]
  - Nasal congestion [Unknown]
  - Hypertension [Unknown]
  - Drug ineffective [Unknown]
  - Condition aggravated [Unknown]
